FAERS Safety Report 22072327 (Version 1)
Quarter: 2023Q1

REPORT INFORMATION
  Report Type: Spontaneous
  Country: ES (occurrence: ES)
  Receive Date: 20230308
  Receipt Date: 20230308
  Transmission Date: 20230418
  Serious: Yes (Other)
  Sender: FDA-Public Use
  Company Number: ES-AMGEN-ESPSP2023038893

PATIENT

DRUGS (1)
  1. ADALIMUMAB [Suspect]
     Active Substance: ADALIMUMAB
     Indication: Crohn^s disease
     Route: 065

REACTIONS (4)
  - Oesophageal carcinoma [Unknown]
  - Extranodal marginal zone B-cell lymphoma (MALT type) [Unknown]
  - Dysplasia [Unknown]
  - Metaplasia [Unknown]
